FAERS Safety Report 7603190-2 (Version None)
Quarter: 2011Q3

REPORT INFORMATION
  Report Type: 
  Country: None (occurrence: None)
  Receive Date: 20110711
  Receipt Date: 20110711
  Transmission Date: 20111222
  Serious: Yes (Death)
  Sender: FDA-Public Use
  Company Number: None

PATIENT
  Age: 52 Year
  Sex: Male
  Weight: 103.8 kg

DRUGS (3)
  1. TEMODAR [Suspect]
     Indication: GLIOBLASTOMA
     Dosage: 165 MG DAILY ORAL
     Route: 048
     Dates: start: 20110303, end: 20110413
  2. GLIADEL [Concomitant]
  3. RADIATION THERAPY [Concomitant]

REACTIONS (5)
  - FALL [None]
  - UNRESPONSIVE TO STIMULI [None]
  - PULMONARY EMBOLISM [None]
  - PUPIL FIXED [None]
  - CARDIO-RESPIRATORY ARREST [None]
